FAERS Safety Report 6176937-2 (Version None)
Quarter: 2009Q2

REPORT INFORMATION
  Report Type: 
  Country: None (occurrence: None)
  Receive Date: 20090501
  Receipt Date: 20090115
  Transmission Date: 20091009
  Serious: Yes (Hospitalization)
  Sender: FDA-Public Use
  Company Number: US-ALEXION-A200900037

PATIENT
  Sex: Male

DRUGS (7)
  1. SOLIRIS [Suspect]
     Indication: PAROXYSMAL NOCTURNAL HAEMOGLOBINURIA
     Dosage: UNK, Q2W
     Route: 042
  2. FOLIC ACID [Concomitant]
     Dosage: UNK
     Route: 048
  3. ARANESP [Concomitant]
     Dosage: UNK
     Route: 048
  4. MOBIC [Concomitant]
     Dosage: UNK
     Route: 048
  5. IRON [Concomitant]
  6. HALOTESTIN [Concomitant]
  7. BENADRYL [Concomitant]

REACTIONS (5)
  - ANAEMIA [None]
  - CHILLS [None]
  - GASTROENTERITIS [None]
  - PYREXIA [None]
  - VIRAL INFECTION [None]
